FAERS Safety Report 9670395 (Version 4)
Quarter: 2013Q4

REPORT INFORMATION
  Report Type: Report from Study
  Country: JP (occurrence: JP)
  Receive Date: 20131105
  Receipt Date: 20131127
  Transmission Date: 20140711
  Serious: Yes (Death)
  Sender: FDA-Public Use
  Company Number: JP-PFIZER INC-2013310724

PATIENT
  Age: 68 Year
  Sex: Male
  Weight: 48 kg

DRUGS (4)
  1. IDAMYCIN [Suspect]
     Indication: ACUTE MYELOID LEUKAEMIA
     Dosage: 2 DF, 1X/DAY (12 MG/M2)
     Route: 042
     Dates: start: 20020106, end: 20020107
  2. CYLOCIDE [Suspect]
     Indication: ACUTE MYELOID LEUKAEMIA
     Dosage: 100 MG/M2,  5 DAYS OF  CONTINUOUS INJECTION
     Route: 042
     Dates: start: 20020106, end: 20020110
  3. GRAN [Suspect]
     Indication: PNEUMONIA
     Dosage: 75 UG, 1X/DAY
     Route: 062
     Dates: start: 20020131, end: 20020203
  4. GRAN [Suspect]
     Indication: SEPSIS

REACTIONS (1)
  - Septic shock [Fatal]
